FAERS Safety Report 25929678 (Version 1)
Quarter: 2025Q4

REPORT INFORMATION
  Report Type: Spontaneous
  Country: US (occurrence: None)
  Receive Date: 20251015
  Receipt Date: 20251015
  Transmission Date: 20260118
  Serious: Yes (Other)
  Sender: FDA-CTU
  Company Number: None

PATIENT
  Sex: Female

DRUGS (3)
  1. NUCALA [Suspect]
     Active Substance: MEPOLIZUMAB
     Indication: Asthma
     Dosage: ?INJECT 1 PEN ( 100 MG) UNDER THE SKIN (SUBCUTANEOUS INJECTION) MONTHLY
     Route: 058
     Dates: start: 20250307
  2. ADVAIR DISKU [Concomitant]
  3. ALBUTEROL [Concomitant]
     Active Substance: ALBUTEROL

REACTIONS (2)
  - Asthma [None]
  - Impaired quality of life [None]
